FAERS Safety Report 5523217-1 (Version None)
Quarter: 2007Q4

REPORT INFORMATION
  Report Type: 
  Country: None (occurrence: None)
  Receive Date: 20071121
  Receipt Date: 20071116
  Transmission Date: 20080405
  Serious: Yes (Other)
  Sender: FDA-Public Use
  Company Number: CZ-BRISTOL-MYERS SQUIBB COMPANY-13976931

PATIENT
  Sex: Female

DRUGS (4)
  1. PACLITAXEL [Suspect]
     Indication: CERVIX CARCINOMA
  2. CISPLATIN [Suspect]
     Indication: CERVIX CARCINOMA
  3. RADIOTHERAPY [Suspect]
     Indication: CERVIX CARCINOMA
  4. BRACHYTHERAPY [Suspect]
     Indication: CERVIX CARCINOMA

REACTIONS (10)
  - BLOOD CREATININE INCREASED [None]
  - COLONIC STENOSIS [None]
  - GASTROENTERITIS RADIATION [None]
  - GASTROINTESTINAL NECROSIS [None]
  - ILEAL PERFORATION [None]
  - ILEORECTAL FISTULA [None]
  - LEUKOPENIA [None]
  - OSTEORADIONECROSIS [None]
  - THROMBOCYTOPENIA [None]
  - URETHRAL STENOSIS [None]
